FAERS Safety Report 6077926-9 (Version None)
Quarter: 2009Q1

REPORT INFORMATION
  Report Type: 
  Country: None (occurrence: None)
  Receive Date: 20090213
  Receipt Date: 20090202
  Transmission Date: 20090719
  Serious: Yes (Other)
  Sender: FDA-Public Use
  Company Number: IE-ROCHE-497032

PATIENT
  Sex: Male

DRUGS (1)
  1. LARIAM [Suspect]
     Indication: FOREIGN TRAVEL
     Dosage: DRUG REPORTED AS: LARIAM 250 MG TABLETS
     Route: 048
     Dates: start: 20050401, end: 20051201

REACTIONS (1)
  - AMNESIA [None]
